FAERS Safety Report 5079817-9 (Version None)
Quarter: 2006Q3

REPORT INFORMATION
  Report Type: 
  Country: None (occurrence: None)
  Receive Date: 20060815
  Receipt Date: 20060724
  Transmission Date: 20061208
  Serious: Yes (Hospitalization)
  Sender: FDA-Public Use
  Company Number: PHMT2006CA01580

PATIENT
  Age: 80 Year
  Sex: Male

DRUGS (6)
  1. ATENOLOL [Concomitant]
  2. COUMADIN [Concomitant]
  3. DIGOXIN [Concomitant]
  4. FUROSEMIDE [Concomitant]
  5. LISINOPRIL [Concomitant]
  6. ZOMETA [Suspect]
     Indication: RENAL CELL CARCINOMA STAGE UNSPECIFIED
     Dosage: 3.3 MG, QMO
     Dates: start: 20060317

REACTIONS (4)
  - ABASIA [None]
  - CELLULITIS [None]
  - COAGULATION TEST ABNORMAL [None]
  - OEDEMA PERIPHERAL [None]
